FAERS Safety Report 6417485-1 (Version None)
Quarter: 2009Q4

REPORT INFORMATION
  Report Type: 
  Country: None (occurrence: None)
  Receive Date: 20091028
  Receipt Date: 20091019
  Transmission Date: 20100525
  Serious: Yes (Other)
  Sender: FDA-Public Use
  Company Number: CA-BRISTOL-MYERS SQUIBB COMPANY-14821524

PATIENT
  Age: 72 Year
  Sex: Male

DRUGS (3)
  1. CARBOPLATIN [Suspect]
     Indication: SMALL CELL CARCINOMA
  2. CISPLATIN [Suspect]
     Indication: SMALL CELL CARCINOMA
  3. ETOPOSIDE [Suspect]
     Indication: SMALL CELL CARCINOMA

REACTIONS (4)
  - ABDOMINAL ABSCESS [None]
  - HAEMOGLOBIN DECREASED [None]
  - RENAL FAILURE ACUTE [None]
  - SMALL INTESTINAL PERFORATION [None]
